FAERS Safety Report 10062253 (Version 5)
Quarter: 2015Q2

REPORT INFORMATION
  Report Type: Report from Study
  Country: JP (occurrence: JP)
  Receive Date: 20140407
  Receipt Date: 20150422
  Transmission Date: 20150821
  Serious: Yes (Hospitalization, Disabling)
  Sender: FDA-Public Use
  Company Number: JP-009507513-1402JPN003099

PATIENT
  Age: 38 Year
  Sex: Male

DRUGS (14)
  1. SALOBEL [Concomitant]
     Active Substance: ALLOPURINOL
     Indication: PROPHYLAXIS
     Dosage: 100 MG, QD
     Route: 048
  2. URSO [Concomitant]
     Active Substance: URSODIOL
     Indication: PROPHYLAXIS
     Dosage: 100 MG, BID
     Route: 048
  3. ZOLINZA [Suspect]
     Active Substance: VORINOSTAT
     Indication: MYCOSIS FUNGOIDES
     Dosage: 300 MG, QD
     Route: 048
     Dates: start: 20130812, end: 20130818
  4. DOMPERIDONE [Concomitant]
     Active Substance: DOMPERIDONE
     Indication: PROPHYLAXIS
     Dosage: 10 MG, TID
     Route: 048
     Dates: start: 20130812, end: 20131008
  5. ZOLINZA [Suspect]
     Active Substance: VORINOSTAT
     Dosage: 200 MG, QD
     Route: 048
     Dates: start: 20130910, end: 20131007
  6. LANSOPRAZOLE. [Concomitant]
     Active Substance: LANSOPRAZOLE
     Indication: PROPHYLAXIS
     Dosage: 15 MG, QD
     Route: 048
  7. ZOLINZA [Suspect]
     Active Substance: VORINOSTAT
     Dosage: 300 MG, QD
     Route: 048
     Dates: start: 20140225, end: 20140506
  8. MYCOSYST [Concomitant]
     Active Substance: FLUCONAZOLE
     Indication: PROPHYLAXIS
     Dosage: 200 MG, QD
     Route: 048
     Dates: end: 20131224
  9. CRAVIT [Concomitant]
     Active Substance: LEVOFLOXACIN
     Indication: PROPHYLAXIS
     Dosage: 500 MG, QD
     Route: 048
     Dates: end: 20131224
  10. RESTAMIN KOWA (DIPHENHYDRAMINE HYDROCHLORIDE) [Concomitant]
     Indication: MYCOSIS FUNGOIDES
     Dosage: DAILY DOSE UNKNOWN
     Route: 061
     Dates: end: 20131224
  11. ZOLINZA [Suspect]
     Active Substance: VORINOSTAT
     Dosage: 300 MG, QD
     Route: 048
     Dates: start: 20140806, end: 20140818
  12. ZOLINZA [Suspect]
     Active Substance: VORINOSTAT
     Dosage: 200 MG, QD
     Route: 048
     Dates: start: 20130819, end: 20130902
  13. ZOLINZA [Suspect]
     Active Substance: VORINOSTAT
     Dosage: 300 MG, QD
     Route: 048
     Dates: start: 20131008, end: 20140113
  14. BAKTAR [Concomitant]
     Active Substance: SULFAMETHOXAZOLE\TRIMETHOPRIM
     Indication: PROPHYLAXIS
     Dosage: 0.5 DF, QD
     Route: 048

REACTIONS (7)
  - Platelet count decreased [Recovering/Resolving]
  - Herpes zoster [Recovered/Resolved with Sequelae]
  - Post herpetic neuralgia [Unknown]
  - Stem cell transplant [Unknown]
  - Platelet count decreased [Recovered/Resolved]
  - Disease progression [Unknown]
  - Neuropathy peripheral [Not Recovered/Not Resolved]

NARRATIVE: CASE EVENT DATE: 20130819
